FAERS Safety Report 6803734-4 (Version None)
Quarter: 2010Q2

REPORT INFORMATION
  Report Type: 
  Country: None (occurrence: None)
  Receive Date: 20100628
  Receipt Date: 20100614
  Transmission Date: 20101027
  Serious: Yes (Other)
  Sender: FDA-Public Use
  Company Number: TR-ELI_LILLY_AND_COMPANY-TR201006004537

PATIENT
  Sex: Female

DRUGS (2)
  1. HUMULIN N [Suspect]
     Indication: GESTATIONAL DIABETES
     Dosage: 10 U, DAILY (1/D)
     Route: 058
  2. HUMULIN R [Suspect]
     Dosage: 21 U, 3/D
     Route: 058

REACTIONS (4)
  - ADRENAL NEOPLASM [None]
  - DRUG EXPOSURE DURING PREGNANCY [None]
  - EYE PAIN [None]
  - HEADACHE [None]
